FAERS Safety Report 9725757 (Version 1)
Quarter: 2013Q4

REPORT INFORMATION
  Report Type: Spontaneous
  Country: US (occurrence: None)
  Receive Date: 20131202
  Receipt Date: 20131202
  Transmission Date: 20140711
  Serious: Yes (Disabling)
  Sender: FDA-Public Use
  Company Number: None

PATIENT
  Sex: 0

DRUGS (1)
  1. EFFIENT [Suspect]
     Indication: STENT PLACEMENT
     Dosage: 1 PILL DAILY
     Dates: start: 201306, end: 201311

REACTIONS (4)
  - Dyspnoea [None]
  - Local swelling [None]
  - Joint swelling [None]
  - Weight increased [None]
